FAERS Safety Report 6913045-4 (Version None)
Quarter: 2010Q3

REPORT INFORMATION
  Report Type: 
  Country: None (occurrence: None)
  Receive Date: 20100806
  Receipt Date: 20090620
  Transmission Date: 20110219
  Serious: No
  Sender: FDA-Public Use
  Company Number: US-PFIZER INC-2009210986

PATIENT
  Age: 83 Year
  Sex: Female
  Weight: 61 kg

DRUGS (5)
  1. DETROL LA [Suspect]
     Indication: HYPERTONIC BLADDER
     Dosage: 4 MG, 1X/DAY
     Route: 048
  2. LISINOPRIL [Concomitant]
  3. RESTORIL [Concomitant]
  4. POTASSIUM [Concomitant]
  5. PROTONIX [Concomitant]

REACTIONS (1)
  - NOCTURIA [None]
